FAERS Safety Report 20378509 (Version 1)
Quarter: 2022Q1

REPORT INFORMATION
  Report Type: Spontaneous
  Country: US (occurrence: US)
  Receive Date: 20220126
  Receipt Date: 20220126
  Transmission Date: 20220424
  Serious: No
  Sender: FDA-Public Use
  Company Number: US-RVL_Pharmaceuticals-USA-POI1255202100054

PATIENT
  Age: 80 Year
  Sex: Female

DRUGS (4)
  1. UPNEEQ [Suspect]
     Active Substance: OXYMETAZOLINE HYDROCHLORIDE
     Indication: Eyelid ptosis
     Dosage: OU
     Route: 047
     Dates: start: 202109, end: 20211030
  2. ESTRADIOL [Concomitant]
     Active Substance: ESTRADIOL
  3. UNSPECIFIED INGREDIENT [Concomitant]
     Active Substance: UNSPECIFIED INGREDIENT
     Indication: Blood pressure measurement
  4. UNSPECIFIED BACK PAIN MEDICATION [Concomitant]
     Indication: Back pain

REACTIONS (2)
  - Headache [Not Recovered/Not Resolved]
  - Periorbital pain [Not Recovered/Not Resolved]

NARRATIVE: CASE EVENT DATE: 20211001
